FAERS Safety Report 20681707 (Version 1)
Quarter: 2022Q2

REPORT INFORMATION
  Report Type: Spontaneous
  Country: CN (occurrence: CN)
  Receive Date: 20220406
  Receipt Date: 20220406
  Transmission Date: 20220721
  Serious: Yes (Hospitalization)
  Sender: FDA-Public Use
  Company Number: CN-BAXTER-2022BAX007394

PATIENT
  Age: 8 Year
  Sex: Female
  Weight: 23.6 kg

DRUGS (5)
  1. CYCLOPHOSPHAMIDE [Suspect]
     Active Substance: CYCLOPHOSPHAMIDE
     Indication: Henoch-Schonlein purpura nephritis
     Dosage: CYCLOPHOSPHAMIDE (0.25 G, QD) DILUTED WITH GLUCOSE INJECTION (250 ML) (SOLVENT 4:1)
     Route: 041
     Dates: start: 20220214, end: 20220215
  2. CYCLOPHOSPHAMIDE [Suspect]
     Active Substance: CYCLOPHOSPHAMIDE
     Dosage: DOSE REINTRODUCED: CYCLOPHOSPHAMIDE DILUTED WITH GLUCOSE INJECTION
     Route: 041
  3. DEXTROSE [Suspect]
     Active Substance: DEXTROSE
     Indication: Medication dilution
     Dosage: CYCLOPHOSPHAMIDE (0.25G, QD) DILUTED WITH GLUCOSE INJECTION (250 ML) (SOLVENT 4:1)
     Route: 041
     Dates: start: 20220214, end: 20220215
  4. DEXTROSE [Suspect]
     Active Substance: DEXTROSE
     Dosage: DOSE REINTRODUCED: CYCLOPHOSPHAMIDE DILUTED WITH GLUCOSE INJECTION
     Route: 041
  5. CIMETIDINE [Concomitant]
     Active Substance: CIMETIDINE
     Indication: Prophylaxis
     Route: 065
     Dates: start: 20220214, end: 20220215

REACTIONS (1)
  - Gastrointestinal disorder [Recovering/Resolving]

NARRATIVE: CASE EVENT DATE: 20220216
